FAERS Safety Report 10408685 (Version 1)
Quarter: 2014Q3

REPORT INFORMATION
  Report Type: Spontaneous
  Country: ES (occurrence: None)
  Receive Date: 20140822
  Receipt Date: 20140822
  Transmission Date: 20150326
  Serious: Yes (Other)
  Sender: FDA-Public Use
  Company Number: ES-ACS-000022

PATIENT
  Age: 58 Year
  Sex: Female

DRUGS (15)
  1. RANITIDINE [Suspect]
     Active Substance: RANITIDINE\RANITIDINE HYDROCHLORIDE
  2. PARACETAMOL [Concomitant]
     Active Substance: ACETAMINOPHEN
  3. ONDANSETRON [Concomitant]
     Active Substance: ONDANSETRON
  4. MIDAZOLAM [Concomitant]
     Active Substance: MIDAZOLAM\MIDAZOLAM HYDROCHLORIDE
  5. SEVOFLURANE. [Concomitant]
     Active Substance: SEVOFLURANE
  6. ROCURONIUM [Suspect]
     Active Substance: ROCURONIUM BROMIDE
     Indication: ANAESTHESIA
  7. EPINEPHRINE. [Concomitant]
     Active Substance: EPINEPHRINE
  8. CEFAZOLIN [Suspect]
     Active Substance: CEFAZOLIN
     Indication: ANTIBIOTIC PROPHYLAXIS
  9. PROPOFOL. [Concomitant]
     Active Substance: PROPOFOL
  10. ROPIVACAINE [Concomitant]
     Active Substance: ROPIVACAINE
  11. LIDOCAINE. [Concomitant]
     Active Substance: LIDOCAINE
  12. DEXKETOPROFEN [Concomitant]
     Active Substance: DEXKETOPROFEN
  13. DEXAMETHASONE. [Concomitant]
     Active Substance: DEXAMETHASONE
  14. FENTANYL. [Concomitant]
     Active Substance: FENTANYL
  15. ATROPINE [Concomitant]
     Active Substance: ATROPINE

REACTIONS (4)
  - Rash [None]
  - Kounis syndrome [None]
  - Bronchospasm [None]
  - Anaphylactic reaction [None]
